FAERS Safety Report 12139365 (Version 2)
Quarter: 2016Q1

REPORT INFORMATION
  Report Type: Spontaneous
  Country: BR (occurrence: BR)
  Receive Date: 20160303
  Receipt Date: 20160309
  Transmission Date: 20160526
  Serious: Yes (Other)
  Sender: FDA-Public Use
  Company Number: BR-ROCHE-1717913

PATIENT
  Age: 56 Year
  Sex: Female
  Weight: 85 kg

DRUGS (11)
  1. DORMONID [Suspect]
     Active Substance: MIDAZOLAM MALEATE
     Indication: DEPRESSION
     Route: 065
     Dates: start: 20160220
  2. SERTRALINE [Concomitant]
     Active Substance: SERTRALINE HYDROCHLORIDE
     Indication: DEPRESSION
     Route: 065
  3. CAPTOPRIL. [Concomitant]
     Active Substance: CAPTOPRIL
     Indication: HYPERTENSION
     Route: 065
  4. LEXOTAN [Suspect]
     Active Substance: BROMAZEPAM
     Indication: INSOMNIA
  5. RIVOTRIL [Suspect]
     Active Substance: CLONAZEPAM
     Indication: INSOMNIA
     Route: 065
  6. LEXOTAN [Suspect]
     Active Substance: BROMAZEPAM
     Indication: DEPRESSION
     Route: 065
     Dates: start: 2006
  7. DORMONID [Suspect]
     Active Substance: MIDAZOLAM MALEATE
     Indication: INSOMNIA
  8. RIVOTRIL [Suspect]
     Active Substance: CLONAZEPAM
     Indication: DEPRESSION
     Route: 065
  9. RIVOTRIL [Suspect]
     Active Substance: CLONAZEPAM
     Indication: DEPRESSION
     Dosage: 20 TO 30 DROPS
     Route: 065
  10. RIVOTRIL [Suspect]
     Active Substance: CLONAZEPAM
     Indication: INSOMNIA
  11. LONGACTIL [Suspect]
     Active Substance: CHLORPROMAZINE HYDROCHLORIDE
     Indication: PRODUCT USED FOR UNKNOWN INDICATION
     Route: 065

REACTIONS (10)
  - Gastric polyps [Not Recovered/Not Resolved]
  - Drug ineffective [Unknown]
  - Drug tolerance [Unknown]
  - Arrhythmia [Not Recovered/Not Resolved]
  - Malaise [Unknown]
  - Pancreatitis [Not Recovered/Not Resolved]
  - Vomiting [Unknown]
  - Hiatus hernia [Not Recovered/Not Resolved]
  - Irritability [Recovering/Resolving]
  - Varicose vein ruptured [Not Recovered/Not Resolved]
